FAERS Safety Report 8199491-2 (Version None)
Quarter: 2012Q1

REPORT INFORMATION
  Report Type: 
  Country: None (occurrence: None)
  Receive Date: 20120309
  Receipt Date: 20120301
  Transmission Date: 20120608
  Serious: Yes (Hospitalization, Other)
  Sender: FDA-Public Use
  Company Number: FR-GILEAD-2008-0019603

PATIENT
  Sex: Male

DRUGS (19)
  1. EMTRICITABINE AND TENOFOVIR DISOPROXIL FUMARATE [Suspect]
     Indication: HIV INFECTION
     Dosage: 1 DF, QD
     Route: 048
     Dates: start: 20080709, end: 20080801
  2. EPIVIR [Concomitant]
  3. ANZATIPINE [Concomitant]
     Indication: MYCOBACTERIUM AVIUM COMPLEX INFECTION
     Route: 048
     Dates: start: 20080703
  4. ISENTRESS [Concomitant]
     Indication: HIV INFECTION
     Route: 048
     Dates: start: 20081007
  5. AMIKACIN [Concomitant]
     Indication: MYCOBACTERIUM AVIUM COMPLEX INFECTION
  6. CLARITHROMYCIN [Concomitant]
     Indication: MYCOBACTERIUM AVIUM COMPLEX INFECTION
     Route: 048
     Dates: start: 20080703
  7. FOLINORAL [Concomitant]
     Indication: ANAEMIA
     Route: 048
     Dates: start: 20080704
  8. FUZEON [Concomitant]
     Dates: start: 20090108
  9. OFLOXACIN [Concomitant]
     Indication: MYCOBACTERIUM AVIUM COMPLEX INFECTION
     Route: 048
     Dates: start: 20081010
  10. BACTRIM [Suspect]
     Indication: PROPHYLAXIS
     Route: 048
     Dates: start: 20080624
  11. VALGANCICLOVIR [Suspect]
     Route: 048
     Dates: start: 20080705
  12. KALETRA [Suspect]
     Indication: HIV INFECTION
     Dosage: 4 DF, BID
     Route: 048
     Dates: start: 20080709, end: 20081007
  13. ACETAMINOPHEN [Concomitant]
     Indication: PROPHYLAXIS
     Route: 048
     Dates: start: 20080703
  14. SOLU-MEDROL [Concomitant]
     Dates: start: 20090216
  15. FLUCONAZOLE [Concomitant]
     Indication: CANDIDIASIS
     Dates: start: 20081215
  16. MYAMBUTOL [Concomitant]
     Indication: MYCOBACTERIUM AVIUM COMPLEX INFECTION
     Route: 048
     Dates: start: 20080703
  17. PRIMPERAN TAB [Concomitant]
     Indication: NAUSEA
     Route: 048
     Dates: start: 20080717
  18. PRIMPERAN TAB [Concomitant]
  19. ZIAGEN [Concomitant]

REACTIONS (8)
  - OESOPHAGEAL CANDIDIASIS [None]
  - IMMUNE RECONSTITUTION SYNDROME [None]
  - GENERAL PHYSICAL CONDITION ABNORMAL [None]
  - ORAL CANDIDIASIS [None]
  - INFECTIOUS PERITONITIS [None]
  - TUBULOINTERSTITIAL NEPHRITIS [None]
  - PANCYTOPENIA [None]
  - RENAL FAILURE [None]
